FAERS Safety Report 24581111 (Version 1)
Quarter: 2024Q4

REPORT INFORMATION
  Report Type: Spontaneous
  Country: HU (occurrence: HU)
  Receive Date: 20241105
  Receipt Date: 20241105
  Transmission Date: 20250114
  Serious: Yes (Other)
  Sender: AMGEN
  Company Number: HU-AMGEN-HUNSP2024213695

PATIENT
  Age: 29 Year
  Sex: Female

DRUGS (1)
  1. ROMIPLOSTIM [Suspect]
     Active Substance: ROMIPLOSTIM
     Indication: Thrombocytopenia
     Dosage: 1 MICROGRAM/KILOGRAM, QWK
     Route: 065
     Dates: start: 201101

REACTIONS (12)
  - Gastrointestinal haemorrhage [Unknown]
  - Umbilical haemorrhage [Unknown]
  - Heavy menstrual bleeding [Recovered/Resolved]
  - Mucocutaneous haemorrhage [Unknown]
  - Epistaxis [Unknown]
  - Hypervolaemia [Unknown]
  - Dyspnoea [Unknown]
  - Chest pain [Unknown]
  - Thrombophlebitis [Unknown]
  - Blood lactate dehydrogenase increased [Unknown]
  - Thrombocytosis [Unknown]
  - Headache [Unknown]
